FAERS Safety Report 8789885 (Version 2)
Quarter: 2012Q4

REPORT INFORMATION
  Report Type: 
  Country: GB (occurrence: GB)
  Receive Date: 20120917
  Receipt Date: 20121015
  Transmission Date: 20130627
  Serious: Yes (Death)
  Sender: FDA-Public Use
  Company Number: GB-PFIZER INC-2012225075

PATIENT
  Age: 50 Year
  Sex: Male
  Weight: 72 kg

DRUGS (19)
  1. ZYVOX [Suspect]
     Indication: STAPHYLOCOCCAL SEPSIS
     Dosage: 620 mg, 1x/day
     Route: 042
     Dates: start: 20120731, end: 20120802
  2. TAZOCIN [Concomitant]
  3. MEROPENEM [Concomitant]
  4. PARACETAMOL [Concomitant]
  5. CANDESARTAN [Concomitant]
  6. OLANZAPINE [Concomitant]
  7. RIVAROXABAN [Concomitant]
  8. RIFAMPICIN [Concomitant]
  9. ENOXAPARIN [Concomitant]
  10. AMLODIPINE [Concomitant]
  11. CODEINE [Concomitant]
  12. TIOTROPIUM [Concomitant]
  13. SALBUTAMOL [Concomitant]
  14. FLUCLOXACILLIN [Concomitant]
  15. LANSOPRAZOLE [Concomitant]
  16. BENDROFLUMETHIAZIDE [Concomitant]
  17. MIRTAZAPINE [Concomitant]
  18. MICAFUNGIN [Concomitant]
  19. FRUSEMIDE [Concomitant]

REACTIONS (2)
  - Staphylococcal sepsis [Fatal]
  - Disease progression [Fatal]
